FAERS Safety Report 6415415-X (Version None)
Quarter: 2009Q4

REPORT INFORMATION
  Report Type: 
  Country: None (occurrence: None)
  Receive Date: 20091027
  Receipt Date: 20091015
  Transmission Date: 20100525
  Serious: Yes (Other)
  Sender: FDA-Public Use
  Company Number: US-KINGPHARMUSA00001-K200901300

PATIENT
  Sex: Female

DRUGS (2)
  1. FLECTOR [Suspect]
     Dosage: UNK
  2. CORTISONE [Concomitant]
     Dosage: UNK

REACTIONS (2)
  - APPLICATION SITE DERMATITIS [None]
  - APPLICATION SITE NECROSIS [None]
